FAERS Safety Report 6330750-1 (Version None)
Quarter: 2009Q3

REPORT INFORMATION
  Report Type: 
  Country: None (occurrence: None)
  Receive Date: 20090827
  Receipt Date: 20090818
  Transmission Date: 20100115
  Serious: Yes (Hospitalization)
  Sender: FDA-Public Use
  Company Number: US-ASTRAZENECA-2009SE08701

PATIENT
  Age: 74 Year
  Sex: Female
  Weight: 71.2 kg

DRUGS (4)
  1. TOPROL-XL [Suspect]
     Indication: HYPERTENSION
     Route: 048
     Dates: start: 20080101, end: 20090502
  2. CRESTOR [Suspect]
     Indication: BLOOD CHOLESTEROL INCREASED
     Route: 048
  3. ASPIRIN [Concomitant]
  4. VASOTEC [Concomitant]
     Indication: HYPERTENSION
     Route: 048
     Dates: start: 20090501

REACTIONS (3)
  - DIZZINESS [None]
  - HEART RATE DECREASED [None]
  - RENAL IMPAIRMENT [None]
